FAERS Safety Report 9147100 (Version 1)
Quarter: 2013Q1

REPORT INFORMATION
  Report Type: Spontaneous
  Country: PL (occurrence: PL)
  Receive Date: 20130307
  Receipt Date: 20130307
  Transmission Date: 20140127
  Serious: Yes (Other)
  Sender: FDA-Public Use
  Company Number: PL-ROCHE-1198329

PATIENT
  Age: 46 Year
  Sex: 0

DRUGS (2)
  1. HERCEPTIN [Suspect]
     Indication: BREAST CANCER
     Route: 065
     Dates: start: 20070102
  2. VINORELBINE [Concomitant]
     Route: 065
     Dates: start: 20070102

REACTIONS (2)
  - Metastases to lung [Unknown]
  - Disease recurrence [Unknown]
